FAERS Safety Report 15648585 (Version 1)
Quarter: 2018Q4

REPORT INFORMATION
  Report Type: Spontaneous
  Country: FR (occurrence: FR)
  Receive Date: 20181122
  Receipt Date: 20181122
  Transmission Date: 20190205
  Serious: Yes (Hospitalization)
  Sender: FDA-Public Use
  Company Number: FR-JNJFOC-20181127639

PATIENT
  Age: 41 Year
  Sex: Male

DRUGS (3)
  1. RIFAMPICINE [Suspect]
     Active Substance: RIFAMPIN
     Indication: LUNG ABSCESS
     Route: 048
     Dates: start: 20181020, end: 20181026
  2. XARELTO [Suspect]
     Active Substance: RIVAROXABAN
     Indication: THROMBOSIS
     Route: 048
  3. LEVOFLOXACIN. [Suspect]
     Active Substance: LEVOFLOXACIN
     Indication: LUNG ABSCESS
     Route: 048
     Dates: start: 20181020, end: 20181026

REACTIONS (1)
  - Acute kidney injury [Not Recovered/Not Resolved]

NARRATIVE: CASE EVENT DATE: 20181025
